FAERS Safety Report 5758831-1 (Version None)
Quarter: 2008Q2

REPORT INFORMATION
  Report Type: 
  Country: None (occurrence: None)
  Receive Date: 20080602
  Receipt Date: 20080519
  Transmission Date: 20081010
  Serious: Yes (Other)
  Sender: FDA-Public Use
  Company Number: 2008-01522

PATIENT
  Age: 73 Year
  Sex: Female

DRUGS (3)
  1. VELCADE [Suspect]
     Indication: MULTIPLE MYELOMA
     Dosage: 2.2 MG, INTRAVENOUS
     Route: 042
     Dates: start: 20071210, end: 20080103
  2. PAMIDRONATE DISODIUM [Concomitant]
  3. ENOXAPARIN SODIUM [Concomitant]

REACTIONS (1)
  - HEPATITIS B [None]
